FAERS Safety Report 9210583 (Version 3)
Quarter: 2013Q3

REPORT INFORMATION
  Report Type: Spontaneous
  Country: IT (occurrence: IT)
  Receive Date: 20130404
  Receipt Date: 20130701
  Transmission Date: 20140515
  Serious: Yes (Other)
  Sender: FDA-Public Use
  Company Number: IT-ASTRAZENECA-2013SE20317

PATIENT
  Age: 13540 Day
  Sex: Female

DRUGS (2)
  1. SEROQUEL [Suspect]
     Indication: INTENTIONAL SELF-INJURY
     Route: 048
     Dates: start: 20130127, end: 20130127
  2. RIVOTRIL [Suspect]
     Indication: INTENTIONAL SELF-INJURY
     Dosage: 2.5 MG/ML, 10 ML
     Route: 048
     Dates: start: 20130127, end: 20130127

REACTIONS (3)
  - Overdose [Unknown]
  - Suicidal ideation [Recovered/Resolved]
  - Sopor [Recovered/Resolved]
